FAERS Safety Report 5104226-3 (Version None)
Quarter: 2006Q3

REPORT INFORMATION
  Report Type: 
  Country: None (occurrence: None)
  Receive Date: 20060911
  Receipt Date: 20060901
  Transmission Date: 20061208
  Serious: Yes (Death, Hospitalization)
  Sender: FDA-Public Use
  Company Number: GXKR2006IT05413

PATIENT
  Age: 53 Year
  Sex: Male

DRUGS (2)
  1. RIBAVIRIN [Suspect]
     Indication: HEPATITIS C VIRUS
     Dosage: 1000 MG, QD, UNK
  2. PEG-INTRON [Suspect]
     Indication: HEPATITIS C VIRUS
     Dosage: 80 UG, QW, UNK

REACTIONS (18)
  - ANURIA [None]
  - ARTERIAL OCCLUSIVE DISEASE [None]
  - ARTERITIS [None]
  - ASCITES [None]
  - HEPATIC FAILURE [None]
  - HEPATORENAL SYNDROME [None]
  - INTESTINAL HAEMORRHAGE [None]
  - INTESTINAL ISCHAEMIA [None]
  - JEJUNITIS [None]
  - MESENTERIC OCCLUSION [None]
  - METABOLIC ACIDOSIS [None]
  - MUCOSAL INFLAMMATION [None]
  - OEDEMATOUS PANCREATITIS [None]
  - POST PROCEDURAL COMPLICATION [None]
  - PULMONARY HYPERTENSION [None]
  - PULMONARY OEDEMA [None]
  - RENAL FAILURE [None]
  - VASCULITIS GASTROINTESTINAL [None]
